FAERS Safety Report 8943738 (Version 2)
Quarter: 2012Q4

REPORT INFORMATION
  Report Type: 
  Country: AU (occurrence: AU)
  Receive Date: 20121204
  Receipt Date: 20121211
  Transmission Date: 20130627
  Serious: Yes (Other)
  Sender: FDA-Public Use
  Company Number: AU-AMGEN-AUSSP2012077226

PATIENT
  Age: 56 Year
  Sex: Female

DRUGS (10)
  1. ENBREL [Suspect]
     Indication: PSORIATIC ARTHROPATHY
     Dosage: UNK
     Dates: start: 200912, end: 201012
  2. ENBREL [Suspect]
     Indication: PSORIASIS
     Dosage: 25 mg, 2 times/wk
  3. SALAZOPYRIN [Concomitant]
     Dosage: 1 g, 2x/day
     Dates: start: 200702
  4. PIROXICAM [Concomitant]
     Indication: ARTHRITIS
     Dosage: 20 mg, qd
  5. PIROXICAM [Concomitant]
     Indication: SPONDYLOARTHROPATHY
     Dosage: UNK UNK, UNK
  6. PREDNISONE [Concomitant]
     Dosage: 2.5 mg, qd
  7. ISONIAZIDE [Concomitant]
     Indication: TUBERCULOSIS
     Dosage: UNK
  8. RIFAMPICIN [Concomitant]
     Indication: TUBERCULOSIS
     Dosage: UNK
  9. PYRAZINAMIDE [Concomitant]
     Indication: TUBERCULOSIS
     Dosage: UNK
  10. ETHAMBUTOL [Concomitant]
     Indication: TUBERCULOSIS
     Dosage: UNK

REACTIONS (1)
  - Cutaneous sarcoidosis [Recovering/Resolving]
